APPROVED DRUG PRODUCT: ALBUTEROL SULFATE
Active Ingredient: ALBUTEROL SULFATE
Strength: EQ 2MG BASE/5ML
Dosage Form/Route: SYRUP;ORAL
Application: A077788 | Product #001 | TE Code: AA
Applicant: CHARTWELL RX SCIENCES LLC
Approved: Jun 26, 2007 | RLD: No | RS: No | Type: RX